FAERS Safety Report 25391367 (Version 1)
Quarter: 2025Q2

REPORT INFORMATION
  Report Type: Spontaneous
  Country: US (occurrence: US)
  Receive Date: 20250603
  Receipt Date: 20250603
  Transmission Date: 20250717
  Serious: Yes (Other)
  Sender: PFIZER
  Company Number: US-PFIZER INC-PV202500065879

PATIENT
  Age: 78 Year
  Sex: Female

DRUGS (6)
  1. IBRANCE [Suspect]
     Active Substance: PALBOCICLIB
     Route: 048
     Dates: start: 20250318, end: 20250414
  2. IBRANCE [Suspect]
     Active Substance: PALBOCICLIB
     Route: 048
     Dates: start: 20250414
  3. IBRANCE [Suspect]
     Active Substance: PALBOCICLIB
     Route: 048
     Dates: start: 20250425
  4. ANASTROZOLE [Suspect]
     Active Substance: ANASTROZOLE
     Dates: start: 2015, end: 202204
  5. ANASTROZOLE [Suspect]
     Active Substance: ANASTROZOLE
     Dates: start: 20250304
  6. ANASTROZOLE [Suspect]
     Active Substance: ANASTROZOLE
     Dosage: 1 MG P.O (PER ORAL) DAILY
     Route: 048

REACTIONS (3)
  - Neutropenia [Unknown]
  - Pancytopenia [Not Recovered/Not Resolved]
  - Neck pain [Unknown]
